FAERS Safety Report 6515586-0 (Version None)
Quarter: 2009Q4

REPORT INFORMATION
  Report Type: 
  Country: None (occurrence: None)
  Receive Date: 20091223
  Receipt Date: 20091214
  Transmission Date: 20100525
  Serious: Yes (Other)
  Sender: FDA-Public Use
  Company Number: JP-BRISTOL-MYERS SQUIBB COMPANY-14901961

PATIENT
  Age: 62 Year
  Sex: Male

DRUGS (1)
  1. MITOMYCIN [Suspect]
     Indication: PANCREATIC CARCINOMA
     Dosage: FORM: INJ
     Route: 065

REACTIONS (1)
  - INTERSTITIAL LUNG DISEASE [None]
